FAERS Safety Report 15104374 (Version 2)
Quarter: 2019Q1

REPORT INFORMATION
  Report Type: Spontaneous
  Country: FR (occurrence: FR)
  Receive Date: 20180703
  Receipt Date: 20190304
  Transmission Date: 20190417
  Serious: Yes (Hospitalization, Other)
  Sender: FDA-Public Use
  Company Number: FR-SA-2018SA164020

PATIENT
  Age: 69 Year
  Sex: Female
  Weight: 77 kg

DRUGS (7)
  1. FEMARA [Concomitant]
     Active Substance: LETROZOLE
     Indication: SUICIDE ATTEMPT
     Route: 048
     Dates: start: 20180331, end: 20180331
  2. STILNOX [Suspect]
     Active Substance: ZOLPIDEM TARTRATE
     Indication: SUICIDE ATTEMPT
     Dosage: UNK
     Route: 048
     Dates: start: 20180331, end: 20180331
  3. IRBESARTAN. [Suspect]
     Active Substance: IRBESARTAN
     Indication: SUICIDE ATTEMPT
     Route: 048
     Dates: start: 20180331, end: 20180331
  4. TENORMINE [Suspect]
     Active Substance: ATENOLOL
     Indication: SUICIDE ATTEMPT
     Dosage: UNK UNK, TOTAL
     Route: 048
     Dates: start: 20180331, end: 20180331
  5. EUTHYROX N [Concomitant]
     Active Substance: LEVOTHYROXINE SODIUM
     Indication: SUICIDE ATTEMPT
     Route: 048
     Dates: start: 20180331, end: 20180331
  6. SIMVASTATIN. [Suspect]
     Active Substance: SIMVASTATIN
     Indication: SUICIDE ATTEMPT
     Route: 048
     Dates: start: 20180331, end: 20180331
  7. UVEDOSE [Concomitant]
     Active Substance: CHOLECALCIFEROL

REACTIONS (3)
  - Sinus bradycardia [Recovered/Resolved]
  - Renal failure [Recovered/Resolved]
  - Hypotension [Recovered/Resolved]

NARRATIVE: CASE EVENT DATE: 20180403
